FAERS Safety Report 4426088-X (Version None)
Quarter: 2004Q3

REPORT INFORMATION
  Report Type: 
  Country: None (occurrence: None)
  Receive Date: 20040811
  Receipt Date: 20040728
  Transmission Date: 20050211
  Serious: Yes (Hospitalization)
  Sender: FDA-Public Use
  Company Number: A02200402168

PATIENT
  Age: 71 Year
  Sex: Female

DRUGS (10)
  1. ARIXTRA [Suspect]
     Indication: DEEP VENOUS THROMBOSIS PROPHYLAXIS
     Dosage: 2.5 MG OD, 15 MG QD  SUBCUTANEOUS
     Route: 058
     Dates: start: 20040507, end: 20040518
  2. PREVISCAN - (FLUINDIONE0 - TABLET - 20 MG [Suspect]
     Indication: ATRIAL FIBRILLATION
     Dosage: 15 MG QD, ORAL
     Route: 048
     Dates: start: 20040512
  3. LOVENOX [Concomitant]
  4. ZOCOR [Concomitant]
  5. BISOPROLOL FUMARATE [Concomitant]
  6. PRACTAZIN (SPIRONOLACTONE/ALTIZIDE) [Concomitant]
  7. FERROUS FUMARATE [Concomitant]
  8. FOLIC ACID [Concomitant]
  9. TOPALGIC (TRAMADOL HYDROCHLORIDE) [Concomitant]
  10. ACETAMINOPHEN [Concomitant]

REACTIONS (4)
  - DRUG INTERACTION [None]
  - HAEMORRHAGE [None]
  - OESOPHAGITIS HAEMORRHAGIC [None]
  - POST PROCEDURAL HAEMATOMA [None]
